FAERS Safety Report 8405847 (Version 4)
Quarter: 2012Q4

REPORT INFORMATION
  Report Type: 
  Country: US (occurrence: US)
  Receive Date: 20120215
  Receipt Date: 20121214
  Transmission Date: 20130627
  Serious: Yes (Hospitalization, Other)
  Sender: FDA-Public Use
  Company Number: US-AMGEN-USASP2012007920

PATIENT
  Age: 85 Year
  Sex: Female
  Weight: 43.08 kg

DRUGS (12)
  1. ENBREL [Suspect]
     Indication: RHEUMATOID ARTHRITIS
     Dosage: 50 mg, qwk
     Dates: start: 20100121
  2. REMICADE [Concomitant]
     Dosage: UNK
  3. METHOTREXATE [Concomitant]
     Dosage: UNK
  4. PLAQUENIL                          /00072602/ [Concomitant]
     Dosage: UNK
  5. FORTEO [Concomitant]
     Dosage: 600 mug/ 2.4 ml qd
  6. AMLODIPINE BESILATE [Concomitant]
     Dosage: 5 mg, qd
  7. OXYCONTIN [Concomitant]
     Dosage: 20 mg, 1 tab every 12 hrs
  8. ATENOLOL [Concomitant]
     Dosage: UNK UNK, qd
  9. VITAMIN D                          /00318501/ [Concomitant]
     Dosage: 400 IU, qd
  10. VITAMIN C                          /00008001/ [Concomitant]
     Dosage: as directed
  11. VITAMIN E                          /00110501/ [Concomitant]
     Dosage: UNK UNK, qd
  12. CALCIUM [Concomitant]
     Dosage: 1 tablet twice a day

REACTIONS (11)
  - Back pain [Not Recovered/Not Resolved]
  - Spinal disorder [Recovered/Resolved]
  - Contusion [Not Recovered/Not Resolved]
  - Fall [Recovered/Resolved]
  - Kyphosis [Unknown]
  - Pain [Recovered/Resolved]
  - Tenderness [Unknown]
  - Muscle atrophy [Unknown]
  - Mobility decreased [Unknown]
  - Injection site pruritus [Unknown]
  - Injection site pain [Unknown]
